FAERS Safety Report 6817695-5 (Version None)
Quarter: 2010Q3

REPORT INFORMATION
  Report Type: 
  Country: None (occurrence: None)
  Receive Date: 20100706
  Receipt Date: 20100625
  Transmission Date: 20110219
  Serious: Yes (Other)
  Sender: FDA-Public Use
  Company Number: US-PFIZER INC-2010080583

PATIENT
  Sex: Female
  Weight: 64 kg

DRUGS (1)
  1. ZYVOX [Suspect]
     Indication: NOSOCOMIAL INFECTION
     Dosage: UNK
     Route: 048
     Dates: end: 20100625

REACTIONS (3)
  - AGEUSIA [None]
  - DYSGEUSIA [None]
  - WEIGHT DECREASED [None]
